FAERS Safety Report 9828258 (Version 1)
Quarter: 2013Q4

REPORT INFORMATION
  Report Type: Spontaneous
  Country: US (occurrence: None)
  Receive Date: 20131120
  Receipt Date: 20131120
  Transmission Date: 20140711
  Serious: No
  Sender: FDA-Public Use
  Company Number: 1000047516

PATIENT
  Age: 70 Year
  Sex: Male

DRUGS (3)
  1. VIIBRYD [Suspect]
     Indication: DEPRESSION
     Route: 048
     Dates: start: 201307, end: 201307
  2. ALLOPURINOL [Concomitant]
  3. BLOOD PRESSURE PILL (NOS) (BLOOD PRESSURE PILL (NOS)) [Concomitant]

REACTIONS (1)
  - Sexual dysfunction [None]
